FAERS Safety Report 23706698 (Version 14)
Quarter: 2025Q4

REPORT INFORMATION
  Report Type: Report from Study
  Country: US (occurrence: US)
  Receive Date: 20240404
  Receipt Date: 20251216
  Transmission Date: 20260119
  Serious: Yes (Hospitalization)
  Sender: PFIZER
  Company Number: US-PFIZER INC-PV202400042523

PATIENT
  Age: 84 Year
  Sex: Female
  Weight: 80.74 kg

DRUGS (3)
  1. TIKOSYN [Suspect]
     Active Substance: DOFETILIDE
     Indication: Atrial fibrillation
     Dosage: 250 MG, 2X/DAY, (TAKES 1 - 250 IN THE MORNING AND TAKES 1 - 250 AT NIGHT)
  2. TIKOSYN [Suspect]
     Active Substance: DOFETILIDE
     Dosage: TAKE 1 CAPSULE BY MOUTH IN THE MORNING AND 1 CAPSULE BEFORE BEDTIME
     Route: 048
  3. TIKOSYN [Suspect]
     Active Substance: DOFETILIDE
     Dosage: TAKE 1 CAPSULE BY MOUTH IN THE MORNING AND 1 CAPSULE BEFORE BEDTIME
     Route: 048
     Dates: start: 20251107

REACTIONS (10)
  - Miosis [Unknown]
  - Gait disturbance [Unknown]
  - Otolithiasis [Unknown]
  - Dizziness [Not Recovered/Not Resolved]
  - Wrong strength [Unknown]
  - Headache [Unknown]
  - Malaise [Not Recovered/Not Resolved]
  - Osteoporosis [Unknown]
  - Illness [Not Recovered/Not Resolved]
  - Mydriasis [Unknown]

NARRATIVE: CASE EVENT DATE: 20240101
